FAERS Safety Report 10385794 (Version 2)
Quarter: 2014Q3

REPORT INFORMATION
  Report Type: Spontaneous
  Country: US (occurrence: US)
  Receive Date: 20140814
  Receipt Date: 20140904
  Transmission Date: 20150326
  Serious: Yes (Hospitalization)
  Sender: FDA-Public Use
  Company Number: US-B.I. PHARMACEUTICALS,INC./RIDGEFIELD-2014-BI-37066BP

PATIENT
  Age: 62 Year
  Sex: Female
  Weight: 104 kg

DRUGS (23)
  1. VENLASAXINE HCL ER [Concomitant]
     Indication: THYROID NEOPLASM
     Dosage: 25 MG
     Route: 048
     Dates: start: 2012
  2. VENTOLIN [Concomitant]
     Active Substance: ALBUTEROL SULFATE
     Indication: ASTHMA
     Dosage: (INHALATION AEROSOL)
     Route: 055
     Dates: start: 2006
  3. ASPIRIN. [Concomitant]
     Active Substance: ASPIRIN
     Dosage: 81 MG
     Route: 048
  4. RANITIDINE [Concomitant]
     Active Substance: RANITIDINE\RANITIDINE HYDROCHLORIDE
     Indication: GASTROOESOPHAGEAL REFLUX DISEASE
     Dosage: 150 MG
     Route: 048
     Dates: start: 2011
  5. PANTOPROZOLE [Concomitant]
     Indication: ULCER HAEMORRHAGE
     Dosage: 80 MG
     Route: 048
     Dates: start: 2011
  6. AMBIEN [Concomitant]
     Active Substance: ZOLPIDEM TARTRATE
     Indication: SLEEP DISORDER
     Dosage: STRENGTH: 5 MG;
     Route: 048
  7. PULMICORT RESPULES [Concomitant]
     Active Substance: BUDESONIDE
     Indication: CHRONIC OBSTRUCTIVE PULMONARY DISEASE
     Dosage: STRENGTH: 1 MG/2 ML; DAILY DOSE: 2 MG/4 ML
     Route: 055
     Dates: start: 2007
  8. SPIRIVA [Suspect]
     Active Substance: TIOTROPIUM BROMIDE MONOHYDRATE
     Indication: CHRONIC OBSTRUCTIVE PULMONARY DISEASE
     Dosage: 18 MCG
     Route: 055
     Dates: start: 2004
  9. SPIRONDACTONE [Concomitant]
     Indication: BLOOD POTASSIUM DECREASED
     Dosage: 50 MG
     Route: 048
     Dates: start: 2013
  10. ALBUTEROL NEBULIZER [Concomitant]
     Active Substance: ALBUTEROL
     Indication: CHRONIC OBSTRUCTIVE PULMONARY DISEASE
     Dosage: STRENGTH: 1.25 MG/3 ML; DAILY DOSE: 3.75 MG/9 ML
     Route: 055
     Dates: start: 2006
  11. LYRICA [Concomitant]
     Active Substance: PREGABALIN
     Indication: FIBROMYALGIA
     Dosage: 150 MG
     Route: 048
     Dates: start: 2011
  12. CRESTOR [Concomitant]
     Active Substance: ROSUVASTATIN CALCIUM
     Indication: BLOOD CHOLESTEROL INCREASED
     Dosage: 20 MG
     Route: 048
  13. ATIVAN [Concomitant]
     Active Substance: LORAZEPAM
     Indication: ANXIETY
     Dosage: 2 MG
     Route: 048
  14. MULTIVITAMIN [Concomitant]
     Active Substance: VITAMINS
     Route: 048
  15. VICODIN [Concomitant]
     Active Substance: ACETAMINOPHEN\HYDROCODONE BITARTRATE
     Indication: PAIN
     Dosage: STRENGTH: 5/500 MG;
     Route: 048
  16. POTASSIUM [Concomitant]
     Active Substance: POTASSIUM
     Indication: BLOOD POTASSIUM DECREASED
     Dosage: 10 MEQ
     Route: 048
     Dates: start: 2006
  17. ZYFLO [Concomitant]
     Active Substance: ZILEUTON
     Indication: ASTHMA
     Dosage: 1800 MG
     Route: 048
     Dates: start: 2006
  18. LASTACAFT [Concomitant]
     Active Substance: ALCAFTADINE
     Indication: DRY EYE
     Route: 050
     Dates: start: 2014
  19. VITAMIN B12 [Concomitant]
     Active Substance: CYANOCOBALAMIN
     Dosage: 1000 MCG
     Route: 048
  20. ACROBOSC [Concomitant]
     Indication: HYPOGLYCAEMIA
     Dosage: 75 MG
     Route: 048
     Dates: start: 2011
  21. LEVOTHYROXINE [Concomitant]
     Active Substance: LEVOTHYROXINE
     Indication: THYROID NEOPLASM
     Dosage: 25 MG
     Route: 048
     Dates: start: 2011
  22. VITAMIN C [Concomitant]
     Active Substance: ASCORBIC ACID
     Dosage: 1000 MG
     Route: 048
  23. BENADRYL [Concomitant]
     Active Substance: DIPHENHYDRAMINE HYDROCHLORIDE
     Indication: COUGH
     Dosage: 75 MG
     Route: 048
     Dates: start: 2006

REACTIONS (11)
  - Arthralgia [Recovered/Resolved]
  - Product quality issue [Recovered/Resolved]
  - Meniscus injury [Not Recovered/Not Resolved]
  - Lung disorder [Not Recovered/Not Resolved]
  - Pneumonia [Recovered/Resolved]
  - Rectal fissure [Recovered/Resolved]
  - Meniscus injury [Recovered/Resolved]
  - Bedridden [Recovered/Resolved]
  - Exostosis [Recovered/Resolved]
  - Migraine [Not Recovered/Not Resolved]
  - Bronchitis [Recovered/Resolved]

NARRATIVE: CASE EVENT DATE: 2006
